FAERS Safety Report 13565385 (Version 2)
Quarter: 2017Q3

REPORT INFORMATION
  Report Type: Spontaneous
  Country: AU (occurrence: AU)
  Receive Date: 20170519
  Receipt Date: 20170710
  Transmission Date: 20171127
  Serious: Yes (Life-Threatening, Other)
  Sender: FDA-Public Use
  Company Number: AU-PFIZER INC-2017215449

PATIENT
  Age: 60 Year
  Sex: Male

DRUGS (2)
  1. SUNITINIB MALATE. [Suspect]
     Active Substance: SUNITINIB MALATE
     Dosage: 37.5 MG, CYCLIC (2 WEEKS ON/1 WEEK OFF)
     Dates: start: 201302
  2. SUNITINIB MALATE. [Suspect]
     Active Substance: SUNITINIB MALATE
     Dosage: 50 MG, CYCLIC (2 WEEKS ON/1 WEEK OFF)
     Dates: start: 201110

REACTIONS (10)
  - Autoresuscitation [Unknown]
  - Stomatitis [Unknown]
  - Neoplasm progression [Unknown]
  - Hypoxia [Unknown]
  - Blood creatine abnormal [Unknown]
  - Bronchial obstruction [Unknown]
  - Dehydration [Unknown]
  - Haemoptysis [Unknown]
  - General physical health deterioration [Unknown]
  - Pleural effusion [Recovered/Resolved]

NARRATIVE: CASE EVENT DATE: 201206
